FAERS Safety Report 6469113-7 (Version None)
Quarter: 2009Q4

REPORT INFORMATION
  Report Type: 
  Country: None (occurrence: None)
  Receive Date: 20091201
  Receipt Date: 20091116
  Transmission Date: 20100525
  Serious: Yes (Death)
  Sender: FDA-Public Use
  Company Number: DSA_41961_2009

PATIENT
  Age: 74 Year
  Sex: Female

DRUGS (1)
  1. VASOTEC [Suspect]
     Indication: DRUG USE FOR UNKNOWN INDICATION
     Dosage: (30 MG QD ORAL)
     Route: 048

REACTIONS (2)
  - IDIOSYNCRATIC DRUG REACTION [None]
  - LIVER INJURY [None]
